FAERS Safety Report 8111159-7 (Version None)
Quarter: 2012Q1

REPORT INFORMATION
  Report Type: 
  Country: None (occurrence: None)
  Receive Date: 20120203
  Receipt Date: 20110520
  Transmission Date: 20120608
  Serious: No
  Sender: FDA-Public Use
  Company Number: US-GLAXOSMITHKLINE-A0928366A

PATIENT
  Age: 26 Year
  Sex: Female
  Weight: 76.4 kg

DRUGS (7)
  1. METROGEL [Concomitant]
     Indication: ACNE
     Route: 061
  2. ORTHO TRI-CYCLEN [Concomitant]
  3. LAMOTRIGINE [Concomitant]
     Dosage: 150MG PER DAY
     Route: 048
     Dates: start: 20060601, end: 20090601
  4. LAMOTRIGINE [Suspect]
     Indication: BIPOLAR DISORDER
     Route: 048
     Dates: start: 20100601
  5. TETRACYCLINE [Concomitant]
  6. VITAMIN D [Concomitant]
     Dosage: 2000UNIT PER DAY
     Route: 048
  7. CLINDAMYCIN GEL [Concomitant]
     Indication: ACNE
     Route: 061

REACTIONS (1)
  - MATERNAL EXPOSURE DURING PREGNANCY [None]
